FAERS Safety Report 6490963-5 (Version None)
Quarter: 2009Q4

REPORT INFORMATION
  Report Type: 
  Country: None (occurrence: None)
  Receive Date: 20091208
  Receipt Date: 20091123
  Transmission Date: 20100525
  Serious: Yes (Other)
  Sender: FDA-Public Use
  Company Number: A-CH2009-30910

PATIENT
  Age: 50 Year

DRUGS (5)
  1. BOSENTAN            (BOSENTAN) TABLET [Suspect]
     Indication: PULMONARY HYPERTENSION
     Dosage: 62.5 MG, BID, ORAL; 125 MG BID, ORAL
     Route: 048
  2. SILDENAFIL [Concomitant]
  3. DEFERASIROX (DEFERASIROX) [Concomitant]
  4. WARFARIN (WARFARIN SOIDUM) [Concomitant]
  5. HYDROXYUREA [Concomitant]

REACTIONS (2)
  - INTRACRANIAL ANEURYSM [None]
  - SUBARACHNOID HAEMORRHAGE [None]
